FAERS Safety Report 25602932 (Version 1)
Quarter: 2025Q3

REPORT INFORMATION
  Report Type: Spontaneous
  Country: PK (occurrence: PK)
  Receive Date: 20250724
  Receipt Date: 20250724
  Transmission Date: 20251021
  Serious: Yes (Death, Other)
  Sender: B. BRAUN MEDICAL INC.
  Company Number: PK-B. Braun Medical Inc.-PK-BBM-202502899

PATIENT
  Age: 64 Year
  Sex: Female

DRUGS (3)
  1. ACETAMINOPHEN [Suspect]
     Active Substance: ACETAMINOPHEN
     Indication: Pain
     Dosage: ACETAMINOPHEN 1000 MG TID
  2. ACETAMINOPHEN\TRAMADOL [Suspect]
     Active Substance: ACETAMINOPHEN\TRAMADOL
  3. PREGABALIN [Suspect]
     Active Substance: PREGABALIN

REACTIONS (1)
  - Angina pectoris [Fatal]
